FAERS Safety Report 4734952-7 (Version None)
Quarter: 2005Q3

REPORT INFORMATION
  Report Type: 
  Country: None (occurrence: None)
  Receive Date: 20050721
  Receipt Date: 20050427
  Transmission Date: 20060218
  Serious: No
  Sender: FDA-Public Use
  Company Number: 2005SP000399

PATIENT
  Age: 33 Year
  Sex: Female
  Weight: 73.0291 kg

DRUGS (3)
  1. LUNESTA [Suspect]
     Indication: INSOMNIA
     Dosage: 2 MG; ORAL; 3 MG; ORAL; 4 MG; ORAL
     Route: 048
     Dates: start: 20050426, end: 20050427
  2. RESTORIL [Concomitant]
  3. KLONOPIN [Concomitant]

REACTIONS (4)
  - ABNORMAL DREAMS [None]
  - DRUG INEFFECTIVE [None]
  - DYSGEUSIA [None]
  - INSOMNIA [None]
